FAERS Safety Report 6461820-5 (Version None)
Quarter: 2009Q4

REPORT INFORMATION
  Report Type: 
  Country: None (occurrence: None)
  Receive Date: 20091130
  Receipt Date: 20091120
  Transmission Date: 20100525
  Serious: Yes (Hospitalization)
  Sender: FDA-Public Use
  Company Number: IT-BRISTOL-MYERS SQUIBB COMPANY-13446083

PATIENT
  Age: 81 Year
  Sex: Female
  Weight: 75 kg

DRUGS (7)
  1. PLACEBO [Suspect]
     Indication: HYPERTENSION
     Dosage: STOPPED FROM 11-JUN-2006 TO 05-MAR-2007 RESTARTED ON 06-MAR-2007 AND STOPPED 31-MAR-2007.
     Dates: start: 20050903, end: 20070331
  2. CLOPIDOGREL BISULFATE [Suspect]
     Indication: PROPHYLAXIS
     Dates: start: 20050903, end: 20060601
  3. ASPIRIN [Suspect]
     Indication: PROPHYLAXIS
     Route: 048
     Dates: start: 20050903, end: 20060601
  4. CORTICOSTEROID [Concomitant]
  5. DIGOXIN [Concomitant]
  6. VALSARTAN [Concomitant]
  7. FENITOINA RUBIO [Concomitant]

REACTIONS (1)
  - HAEMORRHAGIC STROKE [None]
